FAERS Safety Report 17045513 (Version 1)
Quarter: 2019Q4

REPORT INFORMATION
  Report Type: Other
  Country: US (occurrence: US)
  Receive Date: 20191118
  Receipt Date: 20191118
  Transmission Date: 20200122
  Serious: No
  Sender: FDA-Public Use
  Company Number: US-LEADIANT BIOSCIENCES INC-2019STPI000222

PATIENT

DRUGS (15)
  1. CYSTARAN [Suspect]
     Active Substance: CYSTEAMINE HYDROCHLORIDE
     Indication: CYSTINOSIS
     Dosage: 1 DROP, QID INTO BOTH EYES
     Route: 047
     Dates: start: 20150924
  2. SERTRALINE [Concomitant]
     Active Substance: SERTRALINE HYDROCHLORIDE
  3. CLONAZEPAM. [Concomitant]
     Active Substance: CLONAZEPAM
  4. LOSARTAN. [Concomitant]
     Active Substance: LOSARTAN
  5. NIFEDIPINE. [Concomitant]
     Active Substance: NIFEDIPINE
  6. OMEPRAZOLE. [Concomitant]
     Active Substance: OMEPRAZOLE
  7. LORAZEPAM. [Concomitant]
     Active Substance: LORAZEPAM
  8. CLONIDINE. [Concomitant]
     Active Substance: CLONIDINE
  9. HYDROCODONE BITARTRATE AND ACETAMINOPHEN [Concomitant]
     Active Substance: ACETAMINOPHEN\HYDROCODONE BITARTRATE
  10. LEVOTHYROXIN [Concomitant]
     Active Substance: LEVOTHYROXINE
  11. LEVETIRACETAM. [Concomitant]
     Active Substance: LEVETIRACETAM
  12. VIMPAT [Concomitant]
     Active Substance: LACOSAMIDE
  13. CALCIUM ACETAT [Concomitant]
     Active Substance: CALCIUM ACETATE
  14. CARVEDIOL [Concomitant]
     Active Substance: CARVEDILOL
  15. MINOXIDIL. [Concomitant]
     Active Substance: MINOXIDIL

REACTIONS (1)
  - Photophobia [Not Recovered/Not Resolved]
